FAERS Safety Report 14056162 (Version 2)
Quarter: 2017Q4

REPORT INFORMATION
  Report Type: Spontaneous
  Country: RU (occurrence: RU)
  Receive Date: 20171006
  Receipt Date: 20171016
  Transmission Date: 20180321
  Serious: Yes (Hospitalization, Other)
  Sender: FDA-Public Use
  Company Number: RU-ABBVIE-17K-251-2120668-00

PATIENT
  Age: 17 Year
  Sex: Male

DRUGS (3)
  1. ALFA NORMIX [Concomitant]
     Indication: CROHN^S DISEASE
     Dates: start: 201608, end: 201709
  2. AZATHIOPRINE. [Concomitant]
     Active Substance: AZATHIOPRINE
     Indication: CROHN^S DISEASE
     Dates: start: 201608, end: 201709
  3. HUMIRA [Suspect]
     Active Substance: ADALIMUMAB
     Indication: CROHN^S DISEASE
     Route: 058
     Dates: start: 201608, end: 20170919

REACTIONS (3)
  - Coccydynia [Recovering/Resolving]
  - Weight decreased [Recovering/Resolving]
  - Pelvic abscess [Recovering/Resolving]

NARRATIVE: CASE EVENT DATE: 201709
